FAERS Safety Report 11395129 (Version 1)
Quarter: 2015Q3

REPORT INFORMATION
  Report Type: Spontaneous
  Country: US (occurrence: None)
  Receive Date: 20150817
  Receipt Date: 20150817
  Transmission Date: 20151125
  Serious: No
  Sender: FDA-Public Use
  Company Number: None

PATIENT
  Age: 61 Year
  Sex: Female
  Weight: 57.61 kg

DRUGS (5)
  1. SYNTHROID [Concomitant]
     Active Substance: LEVOTHYROXINE SODIUM
  2. ZOMETA [Concomitant]
     Active Substance: ZOLEDRONIC ACID
  3. CENTRUM MULTI VITAMIN [Concomitant]
  4. IBRANCE [Suspect]
     Active Substance: PALBOCICLIB
     Indication: BREAST CANCER METASTATIC
     Dosage: TAKEN BY MOUTH
     Dates: start: 20150721, end: 20150727
  5. FASLODEX [Concomitant]
     Active Substance: FULVESTRANT

REACTIONS (8)
  - Alopecia [None]
  - Diarrhoea [None]
  - Head injury [None]
  - Influenza like illness [None]
  - Migraine [None]
  - Stomatitis [None]
  - Nausea [None]
  - Syncope [None]

NARRATIVE: CASE EVENT DATE: 20150728
